FAERS Safety Report 4534412-2 (Version None)
Quarter: 2004Q4

REPORT INFORMATION
  Report Type: 
  Country: None (occurrence: None)
  Receive Date: 20041222
  Receipt Date: 20041215
  Transmission Date: 20050328
  Serious: Yes (Hospitalization)
  Sender: FDA-Public Use
  Company Number: US-JNJFOC-20041205043

PATIENT
  Sex: Female

DRUGS (7)
  1. DURAGESIC [Suspect]
     Route: 062
     Dates: start: 20031201
  2. DURAGESIC [Suspect]
     Route: 062
     Dates: start: 20031201
  3. RANITIDINE [Concomitant]
     Route: 049
     Dates: start: 20031201
  4. VICODIN [Concomitant]
     Route: 049
     Dates: start: 20041001
  5. VICODIN [Concomitant]
     Indication: PAIN
     Dosage: 5/500 MG AS NEEDED UP TO 3 TIMES A DAY.
     Route: 049
     Dates: start: 20041001
  6. TEGRETOL [Concomitant]
     Route: 049
     Dates: start: 19940101
  7. BACLOFEN [Concomitant]
     Route: 049
     Dates: start: 20010101

REACTIONS (5)
  - BRONCHITIS [None]
  - OOPHORECTOMY BILATERAL [None]
  - OVARIAN TORSION [None]
  - PNEUMONIA [None]
  - SCAR [None]
